FAERS Safety Report 10103149 (Version 1)
Quarter: 2014Q2

REPORT INFORMATION
  Report Type: Spontaneous
  Country: US (occurrence: US)
  Receive Date: 20140424
  Receipt Date: 20140424
  Transmission Date: 20141212
  Serious: No
  Sender: FDA-Public Use
  Company Number: US-BRISTOL-MYERS SQUIBB COMPANY-20132585

PATIENT
  Age: 80 Year
  Sex: Female
  Weight: 61.22 kg

DRUGS (2)
  1. ELIQUIS [Suspect]
     Indication: ATRIAL FIBRILLATION
     Dates: start: 201311
  2. LISINOPRIL [Concomitant]

REACTIONS (3)
  - Limb injury [Unknown]
  - Arthralgia [Unknown]
  - Wrong technique in drug usage process [Unknown]
